FAERS Safety Report 17110013 (Version 1)
Quarter: 2019Q4

REPORT INFORMATION
  Report Type: Report from Study
  Country: CO (occurrence: CO)
  Receive Date: 20191204
  Receipt Date: 20191204
  Transmission Date: 20200122
  Serious: Yes (Other)
  Sender: FDA-Public Use
  Company Number: PHHY2019CO106252

PATIENT
  Age: 57 Year
  Sex: Female

DRUGS (3)
  1. VOTRIENT [Suspect]
     Active Substance: PAZOPANIB HYDROCHLORIDE
     Dosage: 600 MG, QD
     Route: 048
  2. VOTRIENT [Suspect]
     Active Substance: PAZOPANIB HYDROCHLORIDE
     Dosage: 400 MG, QD
     Route: 048
  3. VOTRIENT [Suspect]
     Active Substance: PAZOPANIB HYDROCHLORIDE
     Indication: METASTATIC RENAL CELL CARCINOMA
     Dosage: 800 MG, QD
     Route: 048

REACTIONS (11)
  - Aspartate aminotransferase increased [Unknown]
  - Gastritis [Unknown]
  - Hepatitis [Unknown]
  - Alanine aminotransferase increased [Unknown]
  - Hepatotoxicity [Unknown]
  - Discomfort [Unknown]
  - Headache [Unknown]
  - Acute myocardial infarction [Unknown]
  - Infarction [Unknown]
  - Blood lactate dehydrogenase increased [Unknown]
  - Decreased immune responsiveness [Unknown]

NARRATIVE: CASE EVENT DATE: 20190423
